FAERS Safety Report 15591137 (Version 1)
Quarter: 2018Q4

REPORT INFORMATION
  Report Type: Spontaneous
  Country: CA (occurrence: CA)
  Receive Date: 20181107
  Receipt Date: 20181107
  Transmission Date: 20190205
  Serious: Yes (Other)
  Sender: FDA-Public Use
  Company Number: CA-JNJFOC-20181102828

PATIENT
  Age: 6 Decade
  Sex: Male

DRUGS (3)
  1. MEZAVANT [Concomitant]
     Active Substance: MESALAMINE
     Route: 065
  2. STELARA [Suspect]
     Active Substance: USTEKINUMAB
     Indication: COLITIS ULCERATIVE
     Route: 058
  3. CORTIFOAM [Concomitant]
     Active Substance: HYDROCORTISONE ACETATE
     Route: 065

REACTIONS (3)
  - Off label use [Unknown]
  - Colitis ulcerative [Not Recovered/Not Resolved]
  - Product use in unapproved indication [Unknown]
